FAERS Safety Report 13864333 (Version 1)
Quarter: 2017Q3

REPORT INFORMATION
  Report Type: Spontaneous
  Country: US (occurrence: US)
  Receive Date: 20170811
  Receipt Date: 20170811
  Transmission Date: 20171127
  Serious: Yes (Death)
  Sender: FDA-Public Use
  Company Number: None

PATIENT
  Age: 78 Year
  Sex: Female
  Weight: 85 kg

DRUGS (1)
  1. XARELTO [Suspect]
     Active Substance: RIVAROXABAN
     Indication: PULMONARY EMBOLISM
     Route: 048
     Dates: start: 20170504, end: 20170509

REACTIONS (8)
  - Liver function test increased [None]
  - Blood alkaline phosphatase increased [None]
  - Hepatic necrosis [None]
  - Hypotension [None]
  - General physical health deterioration [None]
  - Blood pH decreased [None]
  - Metabolic acidosis [None]
  - Hepatic steatosis [None]

NARRATIVE: CASE EVENT DATE: 20170509
